FAERS Safety Report 10615536 (Version 1)
Quarter: 2014Q4

REPORT INFORMATION
  Report Type: Spontaneous
  Country: US (occurrence: None)
  Receive Date: 20141125
  Receipt Date: 20141125
  Transmission Date: 20150529
  Serious: Yes (Disabling, Other)
  Sender: FDA-Public Use
  Company Number: None

PATIENT
  Age: 66 Year
  Sex: Male
  Weight: 113.4 kg

DRUGS (1)
  1. FLOMAX [Suspect]
     Active Substance: TAMSULOSIN HYDROCHLORIDE
     Indication: DYSURIA
     Dosage: 1 CAPSULE ONCE DAILY TAKEN BY MOUTH
     Route: 048

REACTIONS (2)
  - Cognitive disorder [None]
  - Memory impairment [None]

NARRATIVE: CASE EVENT DATE: 20141122
